FAERS Safety Report 19457233 (Version 1)
Quarter: 2021Q2

REPORT INFORMATION
  Report Type: Report from Study
  Country: AT (occurrence: AT)
  Receive Date: 20210624
  Receipt Date: 20210624
  Transmission Date: 20210717
  Serious: Yes (Other)
  Sender: FDA-Public Use
  Company Number: NVSC2021AT133911

PATIENT

DRUGS (1)
  1. METFORMIN [Suspect]
     Active Substance: METFORMIN HYDROCHLORIDE
     Indication: TYPE 2 DIABETES MELLITUS
     Route: 065

REACTIONS (8)
  - Blood glucose increased [Unknown]
  - Visual impairment [Unknown]
  - Blood cholesterol increased [Unknown]
  - Hunger [Unknown]
  - Retinopathy [Unknown]
  - Obesity [Unknown]
  - Weight increased [Unknown]
  - Glycosylated haemoglobin increased [Unknown]
